FAERS Safety Report 5481439-2 (Version None)
Quarter: 2007Q4

REPORT INFORMATION
  Report Type: 
  Country: None (occurrence: None)
  Receive Date: 20071010
  Receipt Date: 20071005
  Transmission Date: 20080405
  Serious: Yes (Hospitalization, Other)
  Sender: FDA-Public Use
  Company Number: B0490241A

PATIENT
  Age: 40 Year
  Sex: Female

DRUGS (1)
  1. AUGMENTIN '125' [Suspect]
     Dosage: 625MG TWICE PER DAY
     Dates: start: 20071002, end: 20071003

REACTIONS (3)
  - ANGIOEDEMA [None]
  - FACE OEDEMA [None]
  - RASH [None]
